FAERS Safety Report 11652710 (Version 1)
Quarter: 2015Q4

REPORT INFORMATION
  Report Type: Spontaneous
  Country: US (occurrence: None)
  Receive Date: 20151021
  Receipt Date: 20151021
  Transmission Date: 20160304
  Serious: No
  Sender: FDA-Public Use
  Company Number: None

PATIENT
  Age: 75 Year
  Sex: Female

DRUGS (1)
  1. CEFOTETAN [Suspect]
     Active Substance: CEFOTETAN DISODIUM
     Indication: SEPSIS
     Route: 042
     Dates: start: 20150703, end: 20150705

REACTIONS (7)
  - Coombs direct test positive [None]
  - Confusional state [None]
  - Anaemia [None]
  - Sepsis [None]
  - Colitis ischaemic [None]
  - Jaundice [None]
  - Asthenia [None]

NARRATIVE: CASE EVENT DATE: 20150714
